FAERS Safety Report 17418022 (Version 1)
Quarter: 2020Q1

REPORT INFORMATION
  Report Type: Spontaneous
  Country: US (occurrence: US)
  Receive Date: 20200131
  Receipt Date: 20200131
  Transmission Date: 20200409
  Serious: Yes (Hospitalization)
  Sender: FDA-Public Use
  Company Number: None

PATIENT
  Age: 87 Year
  Sex: Male

DRUGS (1)
  1. CAPECITABINE 500 MG NOVADOZ PHARMACEUTICALS [Suspect]
     Active Substance: CAPECITABINE
     Indication: RECTAL CANCER
     Dosage: ON HOLD
     Route: 048
     Dates: start: 201907

REACTIONS (2)
  - Therapy cessation [None]
  - Cardiac pacemaker insertion [None]

NARRATIVE: CASE EVENT DATE: 20200121
